FAERS Safety Report 24086813 (Version 1)
Quarter: 2024Q3

REPORT INFORMATION
  Report Type: Spontaneous
  Country: US (occurrence: US)
  Receive Date: 20240713
  Receipt Date: 20240713
  Transmission Date: 20241017
  Serious: Yes (Hospitalization, Other)
  Sender: ZYDUS PHARM
  Company Number: US-CADILA HEALTHCARE LIMITED-US-ZYDUS-109255

PATIENT

DRUGS (7)
  1. AMLODIPINE [Suspect]
     Active Substance: AMLODIPINE BESYLATE
     Indication: Suicide attempt
     Dosage: UNK, AT LEAST FIFTEEN TABLET AMLODIPINE 10MG
     Route: 065
  2. METHYLENE BLUE [Suspect]
     Active Substance: METHYLENE BLUE
     Indication: Poisoning
     Dosage: 0.5 MILLIGRAM/KILOGRAM FOR 6 HOURS
     Route: 042
  3. NOREPINEPHRINE BITARTRATE [Suspect]
     Active Substance: NOREPINEPHRINE BITARTRATE
     Indication: Intentional overdose
     Dosage: UNK
     Route: 065
  4. LISINOPRIL [Suspect]
     Active Substance: LISINOPRIL
     Indication: Suicide attempt
     Dosage: UNK,  UNSPECIFIED AMOUNT OF LISINOPRIL
     Route: 065
  5. VALPROATE SODIUM [Suspect]
     Active Substance: VALPROATE SODIUM
     Indication: Suicide attempt
     Dosage: UNK, UNSPECIFIED AMOUNT
     Route: 065
  6. VASOPRESSIN [Concomitant]
     Active Substance: VASOPRESSIN
     Indication: Overdose
     Dosage: UNK
     Route: 065
  7. EPINEPHRINE [Concomitant]
     Active Substance: EPINEPHRINE
     Indication: Overdose
     Dosage: UNK
     Route: 065

REACTIONS (8)
  - Lactic acidosis [Not Recovered/Not Resolved]
  - Leukocytosis [Unknown]
  - Blood creatinine increased [Unknown]
  - Vasoplegia syndrome [Unknown]
  - Hyperglycaemia [Unknown]
  - Intentional overdose [Unknown]
  - Chromaturia [Unknown]
  - Drug ineffective [Unknown]
